FAERS Safety Report 25876982 (Version 2)
Quarter: 2025Q4

REPORT INFORMATION
  Report Type: Report from Study
  Country: CL (occurrence: CL)
  Receive Date: 20251003
  Receipt Date: 20251009
  Transmission Date: 20260117
  Serious: Yes (Hospitalization)
  Sender: ROCHE
  Company Number: CL-ROCHE-10000399530

PATIENT
  Age: 89 Year
  Sex: Female

DRUGS (11)
  1. HERCEPTIN [Suspect]
     Active Substance: TRASTUZUMAB
     Indication: HER2 positive breast cancer
     Route: 058
     Dates: start: 20240513
  2. EXEMESTANE [Concomitant]
     Active Substance: EXEMESTANE
  3. CINACALCET [Concomitant]
     Active Substance: CINACALCET
  4. ENALAPRIL [Concomitant]
     Active Substance: ENALAPRIL
  5. ACETAMINOPHEN [Concomitant]
     Active Substance: ACETAMINOPHEN
  6. CENTELLA ASIATICA WHOLE [Concomitant]
     Active Substance: CENTELLA ASIATICA WHOLE
  7. HYDROCHLOROTHIAZIDE [Concomitant]
     Active Substance: HYDROCHLOROTHIAZIDE
  8. LEVOTHYROXINE [Concomitant]
     Active Substance: LEVOTHYROXINE
  9. PREGABALIN [Concomitant]
     Active Substance: PREGABALIN
  10. ESZOPICLONE [Concomitant]
     Active Substance: ESZOPICLONE
  11. LACTULOSE [Concomitant]
     Active Substance: LACTULOSE
     Dosage: 1 TABLESPOON SOS

REACTIONS (1)
  - Intestinal obstruction [Recovered/Resolved]

NARRATIVE: CASE EVENT DATE: 20250915
